FAERS Safety Report 4809806-8 (Version None)
Quarter: 2005Q4

REPORT INFORMATION
  Report Type: 
  Country: None (occurrence: None)
  Receive Date: 20051024
  Receipt Date: 20051003
  Transmission Date: 20060501
  Serious: Yes (Death, Hospitalization)
  Sender: FDA-Public Use
  Company Number: PAR_0364_2005

PATIENT
  Sex: Male

DRUGS (3)
  1. ALLOPURINOL [Suspect]
     Indication: BLOOD URIC ACID INCREASED
     Dosage: DF UNK UNK
     Route: 065
  2. PROBENECID [Concomitant]
  3. INDOMETHACIN [Concomitant]

REACTIONS (16)
  - BLISTER [None]
  - CARDIOMEGALY [None]
  - CHILLS [None]
  - COUGH [None]
  - EPIDERMAL NECROSIS [None]
  - PAIN IN EXTREMITY [None]
  - PYREXIA [None]
  - RASH ERYTHEMATOUS [None]
  - RASH GENERALISED [None]
  - RASH MACULO-PAPULAR [None]
  - RENAL CYST [None]
  - RENAL FAILURE [None]
  - SKIN EXFOLIATION [None]
  - SYNCOPE [None]
  - VENTRICULAR FIBRILLATION [None]
  - WHEEZING [None]
